FAERS Safety Report 20606340 (Version 1)
Quarter: 2022Q1

REPORT INFORMATION
  Report Type: Spontaneous
  Country: AU (occurrence: AU)
  Receive Date: 20220317
  Receipt Date: 20220317
  Transmission Date: 20220424
  Serious: Yes (Other)
  Sender: FDA-Public Use
  Company Number: AU-NOVARTISPH-NVSC2022AU059817

PATIENT

DRUGS (51)
  1. CARBOPLATIN [Suspect]
     Active Substance: CARBOPLATIN
     Indication: Central nervous system lymphoma
     Dosage: UNK
     Route: 065
  2. CARBOPLATIN [Suspect]
     Active Substance: CARBOPLATIN
     Indication: Central nervous system lymphoma
  3. CARBOPLATIN [Suspect]
     Active Substance: CARBOPLATIN
     Indication: Marginal zone lymphoma
  4. CARBOPLATIN [Suspect]
     Active Substance: CARBOPLATIN
     Indication: Mantle cell lymphoma
  5. CARBOPLATIN [Suspect]
     Active Substance: CARBOPLATIN
     Indication: Chronic lymphocytic leukaemia
  6. DEXAMETHASONE [Suspect]
     Active Substance: DEXAMETHASONE
     Indication: Central nervous system lymphoma
     Dosage: UNK
     Route: 065
  7. DEXAMETHASONE [Suspect]
     Active Substance: DEXAMETHASONE
     Indication: Central nervous system lymphoma
  8. DOXYCYCLINE [Suspect]
     Active Substance: DOXYCYCLINE
     Indication: Central nervous system lymphoma
     Dosage: UNK
     Route: 065
  9. DOXYCYCLINE [Suspect]
     Active Substance: DOXYCYCLINE
     Indication: Central nervous system lymphoma
  10. DOXYCYCLINE [Suspect]
     Active Substance: DOXYCYCLINE
     Indication: Mantle cell lymphoma
  11. DOXYCYCLINE [Suspect]
     Active Substance: DOXYCYCLINE
     Indication: Marginal zone lymphoma
  12. DOXYCYCLINE [Suspect]
     Active Substance: DOXYCYCLINE
     Indication: Chronic lymphocytic leukaemia
  13. ETOPOSIDE [Suspect]
     Active Substance: ETOPOSIDE
     Indication: Central nervous system lymphoma
     Dosage: UNK
     Route: 065
  14. ETOPOSIDE [Suspect]
     Active Substance: ETOPOSIDE
     Indication: Central nervous system lymphoma
  15. ETOPOSIDE [Suspect]
     Active Substance: ETOPOSIDE
     Indication: Marginal zone lymphoma
  16. ETOPOSIDE [Suspect]
     Active Substance: ETOPOSIDE
     Indication: Mantle cell lymphoma
  17. ETOPOSIDE [Suspect]
     Active Substance: ETOPOSIDE
     Indication: Chronic lymphocytic leukaemia
  18. IBRUTINIB [Suspect]
     Active Substance: IBRUTINIB
     Indication: Central nervous system lymphoma
     Dosage: 420 MG
     Route: 048
  19. IBRUTINIB [Suspect]
     Active Substance: IBRUTINIB
     Indication: Chronic lymphocytic leukaemia
     Dosage: 560 MG
     Route: 048
  20. IBRUTINIB [Suspect]
     Active Substance: IBRUTINIB
     Indication: Marginal zone lymphoma
  21. IBRUTINIB [Suspect]
     Active Substance: IBRUTINIB
     Indication: Mantle cell lymphoma
  22. IFOSFAMIDE [Suspect]
     Active Substance: IFOSFAMIDE
     Indication: Central nervous system lymphoma
     Dosage: UNK
     Route: 065
  23. IFOSFAMIDE [Suspect]
     Active Substance: IFOSFAMIDE
     Indication: Central nervous system lymphoma
  24. IFOSFAMIDE [Suspect]
     Active Substance: IFOSFAMIDE
     Indication: Marginal zone lymphoma
  25. IFOSFAMIDE [Suspect]
     Active Substance: IFOSFAMIDE
     Indication: Mantle cell lymphoma
  26. IFOSFAMIDE [Suspect]
     Active Substance: IFOSFAMIDE
     Indication: Chronic lymphocytic leukaemia
  27. METHOTREXATE [Suspect]
     Active Substance: METHOTREXATE
     Indication: Central nervous system lymphoma
     Dosage: UNK
     Route: 065
  28. METHOTREXATE [Suspect]
     Active Substance: METHOTREXATE
     Indication: Marginal zone lymphoma
  29. METHOTREXATE [Suspect]
     Active Substance: METHOTREXATE
     Indication: Mantle cell lymphoma
  30. METHOTREXATE [Suspect]
     Active Substance: METHOTREXATE
     Indication: Chronic lymphocytic leukaemia
  31. METHOTREXATE [Suspect]
     Active Substance: METHOTREXATE
     Indication: Central nervous system lymphoma
  32. OFATUMUMAB [Suspect]
     Active Substance: OFATUMUMAB
     Indication: Central nervous system lymphoma
     Dosage: UNK
     Route: 065
  33. OFATUMUMAB [Suspect]
     Active Substance: OFATUMUMAB
     Indication: Central nervous system lymphoma
  34. OFATUMUMAB [Suspect]
     Active Substance: OFATUMUMAB
     Indication: Marginal zone lymphoma
  35. OFATUMUMAB [Suspect]
     Active Substance: OFATUMUMAB
     Indication: Mantle cell lymphoma
  36. OFATUMUMAB [Suspect]
     Active Substance: OFATUMUMAB
     Indication: Chronic lymphocytic leukaemia
  37. RITUXIMAB [Suspect]
     Active Substance: RITUXIMAB
     Indication: Central nervous system lymphoma
     Dosage: UNK
     Route: 065
  38. RITUXIMAB [Suspect]
     Active Substance: RITUXIMAB
     Indication: Marginal zone lymphoma
  39. RITUXIMAB [Suspect]
     Active Substance: RITUXIMAB
     Indication: Mantle cell lymphoma
  40. RITUXIMAB [Suspect]
     Active Substance: RITUXIMAB
     Indication: Chronic lymphocytic leukaemia
  41. TEMOZOLOMIDE [Suspect]
     Active Substance: TEMOZOLOMIDE
     Indication: Central nervous system lymphoma
     Dosage: UNK
     Route: 065
  42. TEMOZOLOMIDE [Suspect]
     Active Substance: TEMOZOLOMIDE
     Indication: Central nervous system lymphoma
  43. TEMOZOLOMIDE [Suspect]
     Active Substance: TEMOZOLOMIDE
     Indication: Marginal zone lymphoma
  44. TEMOZOLOMIDE [Suspect]
     Active Substance: TEMOZOLOMIDE
     Indication: Mantle cell lymphoma
  45. TEMOZOLOMIDE [Suspect]
     Active Substance: TEMOZOLOMIDE
     Indication: Chronic lymphocytic leukaemia
  46. OBINUTUZUMAB [Suspect]
     Active Substance: OBINUTUZUMAB
     Indication: Central nervous system lymphoma
     Dosage: UNK
     Route: 042
  47. OBINUTUZUMAB [Suspect]
     Active Substance: OBINUTUZUMAB
     Indication: Marginal zone lymphoma
  48. OBINUTUZUMAB [Suspect]
     Active Substance: OBINUTUZUMAB
     Indication: Mantle cell lymphoma
  49. OBINUTUZUMAB [Suspect]
     Active Substance: OBINUTUZUMAB
     Indication: Chronic lymphocytic leukaemia
  50. VENETOCLAX [Suspect]
     Active Substance: VENETOCLAX
     Indication: Central nervous system lymphoma
     Dosage: UNK
     Route: 048
  51. VENETOCLAX [Suspect]
     Active Substance: VENETOCLAX
     Indication: Central nervous system lymphoma

REACTIONS (9)
  - Anaemia [Unknown]
  - Aspergillus infection [Unknown]
  - Atrial fibrillation [Unknown]
  - Cytopenia [Unknown]
  - Febrile neutropenia [Unknown]
  - Haemorrhage [Unknown]
  - Infection [Unknown]
  - Neutropenia [Unknown]
  - Thrombocytopenia [Unknown]
